FAERS Safety Report 4846825-X (Version None)
Quarter: 2005Q4

REPORT INFORMATION
  Report Type: 
  Country: None (occurrence: None)
  Receive Date: 20051207
  Receipt Date: 20051029
  Transmission Date: 20060501
  Serious: Yes (Other)
  Sender: FDA-Public Use
  Company Number: PHRM2005FR02881

PATIENT
  Sex: Male
  Weight: 20 kg

DRUGS (1)
  1. GLEEVEC [Suspect]
     Indication: CHRONIC MYELOID LEUKAEMIA
     Dosage: 500 MG DAILY
     Route: 048
     Dates: start: 20020302

REACTIONS (3)
  - AMYOTROPHY [None]
  - BODY HEIGHT BELOW NORMAL [None]
  - SWELLING FACE [None]
